FAERS Safety Report 8710049 (Version 2)
Quarter: 2013Q1

REPORT INFORMATION
  Report Type: Spontaneous
  Country: IT (occurrence: IT)
  Receive Date: 20120806
  Receipt Date: 20130208
  Transmission Date: 20140127
  Serious: Yes (Hospitalization)
  Sender: FDA-Public Use
  Company Number: IT-ROCHE-1096453

PATIENT
  Age: 32 Year
  Sex: Female

DRUGS (4)
  1. MABTHERA [Suspect]
     Indication: RHEUMATOID ARTHRITIS
     Route: 041
     Dates: start: 20120330, end: 20120413
  2. SOLU-MEDROL [Concomitant]
     Route: 065
  3. TRIMETON [Concomitant]
     Route: 065
  4. TACHIPIRINA [Concomitant]
     Route: 065

REACTIONS (4)
  - Glossitis [Recovered/Resolved]
  - Granulocyte count decreased [Recovered/Resolved]
  - Pyrexia [Recovered/Resolved]
  - Malaise [Recovered/Resolved]
